FAERS Safety Report 8828783 (Version 2)
Quarter: 2012Q4

REPORT INFORMATION
  Report Type: Report from Study
  Country: DE (occurrence: DE)
  Receive Date: 20121008
  Receipt Date: 20121206
  Transmission Date: 20130627
  Serious: Yes (Life-Threatening, Hospitalization)
  Sender: FDA-Public Use
  Company Number: DE-ROCHE-1142409

PATIENT
  Age: 58 Year
  Sex: Male
  Weight: 113 kg

DRUGS (1)
  1. METHOXY POLYETHYLENE GLYCOL-EPOETIN BETA [Suspect]
     Indication: PRODUCT USED FOR UNKNOWN INDICATION
     Dosage: Last dose prior to SAE 28 Dec 2011
     Route: 058
     Dates: start: 20110131

REACTIONS (1)
  - Thyroid cancer [Unknown]
